FAERS Safety Report 16949981 (Version 2)
Quarter: 2019Q4

REPORT INFORMATION
  Report Type: Spontaneous
  Country: US (occurrence: US)
  Receive Date: 20191023
  Receipt Date: 20191115
  Transmission Date: 20200122
  Serious: No
  Sender: FDA-Public Use
  Company Number: US-GLAXOSMITHKLINE-US2019AMR189753

PATIENT
  Sex: Female

DRUGS (1)
  1. NUCALA [Suspect]
     Active Substance: MEPOLIZUMAB
     Indication: ASTHMA
     Dosage: UNK, EVERY 28 DAYS
     Route: 065

REACTIONS (3)
  - Headache [Recovered/Resolved]
  - Pruritus [Recovered/Resolved]
  - Paraesthesia oral [Recovered/Resolved]
